FAERS Safety Report 14925545 (Version 2)
Quarter: 2018Q2

REPORT INFORMATION
  Report Type: Report from Study
  Country: US (occurrence: US)
  Receive Date: 20180522
  Receipt Date: 20180605
  Transmission Date: 20180711
  Serious: Yes (Hospitalization, Other)
  Sender: FDA-Public Use
  Company Number: US-JNJFOC-20180523000

PATIENT
  Age: 58 Year
  Sex: Female

DRUGS (3)
  1. ATENOLOL. [Concomitant]
     Active Substance: ATENOLOL
     Indication: HYPERTENSION
     Route: 048
     Dates: start: 2008
  2. CANNABIS [Concomitant]
     Active Substance: CANNABIS SATIVA SUBSP. INDICA TOP
     Indication: CROHN^S DISEASE
     Dosage: 1 OMG CBD 10 OMG
     Route: 048
  3. REMICADE [Suspect]
     Active Substance: INFLIXIMAB
     Indication: CROHN^S DISEASE
     Route: 042
     Dates: end: 200903

REACTIONS (4)
  - Parvovirus infection [Unknown]
  - Serum sickness [Recovered/Resolved]
  - Systemic lupus erythematosus [Unknown]
  - Weight decreased [Unknown]

NARRATIVE: CASE EVENT DATE: 200903
